FAERS Safety Report 14092410 (Version 1)
Quarter: 2017Q4

REPORT INFORMATION
  Report Type: Spontaneous
  Country: US (occurrence: None)
  Receive Date: 20171016
  Receipt Date: 20171016
  Transmission Date: 20180321
  Serious: Yes (Hospitalization)
  Sender: FDA-Public Use
  Company Number: None

PATIENT
  Age: 34 Year
  Sex: Female
  Weight: 44.6 kg

DRUGS (1)
  1. KEYTRUDA [Suspect]
     Active Substance: PEMBROLIZUMAB
     Indication: BREAST CANCER
     Route: 042
     Dates: start: 20171010

REACTIONS (2)
  - Muscle spasms [None]
  - Cough [None]

NARRATIVE: CASE EVENT DATE: 20171010
